FAERS Safety Report 5105255-6 (Version None)
Quarter: 2006Q3

REPORT INFORMATION
  Report Type: 
  Country: None (occurrence: None)
  Receive Date: 20060911
  Receipt Date: 20060829
  Transmission Date: 20061208
  Serious: Yes (Death, Hospitalization)
  Sender: FDA-Public Use
  Company Number: US200606001628

PATIENT
  Age: 72 Year
  Sex: Female

DRUGS (8)
  1. ZYPREXA [Suspect]
     Indication: DEMENTIA
     Dosage: ORAL
     Route: 048
     Dates: start: 20040101
  2. LORAZEPAM [Concomitant]
  3. POTASSIUM CHLORIDE [Concomitant]
  4. HYDROCORTISONE [Concomitant]
  5. ALENDRONATE SODIUM [Concomitant]
  6. FLUDROCORTISONE ACETATE [Concomitant]
  7. DEXAMETHASONE TAB [Concomitant]
  8. CIRPOFLOXACIN (CIPROFLOXACIN) [Concomitant]

REACTIONS (5)
  - ADRENAL INSUFFICIENCY [None]
  - DECREASED APPETITE [None]
  - DEHYDRATION [None]
  - DYSPNOEA [None]
  - MALAISE [None]
